FAERS Safety Report 8519163 (Version 3)
Quarter: 2012Q4

REPORT INFORMATION
  Report Type: 
  Country: US (occurrence: US)
  Receive Date: 20120418
  Receipt Date: 20121029
  Transmission Date: 20130627
  Serious: Yes (Hospitalization, Other)
  Sender: FDA-Public Use
  Company Number: US-BAYER-2012-036865

PATIENT
  Age: 35 Year
  Sex: Female
  Weight: 117.91 kg

DRUGS (15)
  1. YASMIN [Suspect]
     Indication: ACNE
     Dosage: UNK
     Dates: start: 200203, end: 200510
  2. YASMIN [Suspect]
     Indication: PREMENSTRUAL SYNDROME
  3. METROGEL [Concomitant]
     Dosage: 0.75 %, UNK
     Dates: start: 20050802
  4. MINOCYCLINE [Concomitant]
     Dosage: 100 mg, UNK
     Dates: start: 20050821
  5. OXYCODONE/APAP [Concomitant]
     Dosage: UNK
     Dates: start: 20051012
  6. MOTRIN [Concomitant]
  7. VITAMINS [Concomitant]
  8. JUICE PLUS VITAMINS [Concomitant]
     Dosage: UNK;1 or 2 pills per day
  9. GABAPENTIN [Concomitant]
     Dosage: 300 mg, UNK
     Dates: start: 20110903
  10. DESENEX [ISOPROPANOL,UNDECYLENIC ACID] [Concomitant]
     Dosage: 2 UNK, UNK
     Dates: start: 20111021
  11. FLEXERIL [Concomitant]
     Dosage: 10 mg, UNK
  12. PROBIOTICS [Concomitant]
  13. ALEVE [Concomitant]
     Dosage: 220 mg, UNK
  14. TYLENOL [Concomitant]
  15. ASPIRIN [Concomitant]
     Dosage: UNK UNK, QD

REACTIONS (12)
  - Deep vein thrombosis [Recovered/Resolved]
  - Pulmonary embolism [Recovered/Resolved]
  - Venous thrombosis limb [None]
  - Thrombophlebitis superficial [None]
  - Atelectasis [Recovered/Resolved]
  - Pain [None]
  - General physical health deterioration [Recovered/Resolved]
  - Anxiety [None]
  - Emotional distress [None]
  - Pain in extremity [Recovered/Resolved]
  - Chest pain [Recovered/Resolved]
  - Dyspnoea [Recovered/Resolved]
